FAERS Safety Report 8129150-3 (Version None)
Quarter: 2012Q1

REPORT INFORMATION
  Report Type: 
  Country: None (occurrence: None)
  Receive Date: 20120210
  Receipt Date: 20111018
  Transmission Date: 20120608
  Serious: No
  Sender: FDA-Public Use
  Company Number: US-BRISTOL-MYERS SQUIBB COMPANY-16173031

PATIENT
  Sex: Female

DRUGS (3)
  1. PLAQUENIL [Concomitant]
  2. ORENCIA [Suspect]
     Dosage: NO.OF INF:3
  3. MOBIC [Concomitant]

REACTIONS (1)
  - PYREXIA [None]
